FAERS Safety Report 25009126 (Version 1)
Quarter: 2025Q1

REPORT INFORMATION
  Report Type: Spontaneous
  Country: US (occurrence: US)
  Receive Date: 20250225
  Receipt Date: 20250225
  Transmission Date: 20250409
  Serious: Yes (Hospitalization, Other)
  Sender: PFIZER
  Company Number: US-PFIZER INC-202500041697

PATIENT
  Age: 48 Year
  Sex: Male

DRUGS (9)
  1. BRENTUXIMAB VEDOTIN [Suspect]
     Active Substance: BRENTUXIMAB VEDOTIN
     Dates: end: 20240731
  2. BRENTUXIMAB VEDOTIN [Suspect]
     Active Substance: BRENTUXIMAB VEDOTIN
     Dates: start: 20250107
  3. DACARBAZINE [Suspect]
     Active Substance: DACARBAZINE
     Dates: end: 20240731
  4. DACARBAZINE [Suspect]
     Active Substance: DACARBAZINE
     Dates: start: 20250107
  5. DOXORUBICIN HYDROCHLORIDE [Suspect]
     Active Substance: DOXORUBICIN HYDROCHLORIDE
     Dates: end: 20240731
  6. DOXORUBICIN HYDROCHLORIDE [Suspect]
     Active Substance: DOXORUBICIN HYDROCHLORIDE
     Dates: start: 20250107
  7. VINBLASTINE [Suspect]
     Active Substance: VINBLASTINE
     Dates: end: 20240731
  8. VINBLASTINE [Suspect]
     Active Substance: VINBLASTINE
     Dates: start: 20250107
  9. NEULASTA [Concomitant]
     Active Substance: PEGFILGRASTIM

REACTIONS (5)
  - Diverticulitis [Unknown]
  - Gastrointestinal stoma complication [Unknown]
  - Neuropathy peripheral [Unknown]
  - Paraesthesia [Unknown]
  - Burning sensation [Unknown]
